FAERS Safety Report 4890457-4 (Version None)
Quarter: 2005Q4

REPORT INFORMATION
  Report Type: 
  Country: None (occurrence: None)
  Receive Date: 20051216
  Receipt Date: 20050914
  Transmission Date: 20060501
  Serious: No
  Sender: FDA-Public Use
  Company Number: BDI-007518

PATIENT
  Age: 32 Year
  Sex: Female

DRUGS (2)
  1. MULTIHANCE [Suspect]
     Indication: MASS
     Dosage: 10 ML ONCE IV
     Route: 042
     Dates: start: 20050912, end: 20050912
  2. MULTIHANCE [Suspect]
     Indication: NUCLEAR MAGNETIC RESONANCE IMAGING
     Dosage: 10 ML ONCE IV
     Route: 042
     Dates: start: 20050912, end: 20050912

REACTIONS (2)
  - SINUS CONGESTION [None]
  - SNEEZING [None]
